FAERS Safety Report 6208876-2 (Version None)
Quarter: 2009Q2

REPORT INFORMATION
  Report Type: 
  Country: None (occurrence: None)
  Receive Date: 20090529
  Receipt Date: 20090522
  Transmission Date: 20091009
  Serious: Yes (Life-Threatening, Hospitalization, Other)
  Sender: FDA-Public Use
  Company Number: B0570412A

PATIENT
  Sex: Female

DRUGS (2)
  1. RELENZA [Suspect]
     Indication: INFLUENZA
     Route: 055
     Dates: start: 20090214, end: 20090215
  2. ERYTHROCIN [Concomitant]
     Indication: CHRONIC SINUSITIS
     Route: 048
     Dates: start: 19940101

REACTIONS (14)
  - ARTHRALGIA [None]
  - DECREASED APPETITE [None]
  - DRUG ERUPTION [None]
  - DYSPHAGIA [None]
  - GENERALISED ERYTHEMA [None]
  - LIP EXFOLIATION [None]
  - LIP OEDEMA [None]
  - MOUTH HAEMORRHAGE [None]
  - MUCOSAL EROSION [None]
  - ORAL DISORDER [None]
  - PYREXIA [None]
  - SKIN LESION [None]
  - STEVENS-JOHNSON SYNDROME [None]
  - TONGUE COATED [None]
